FAERS Safety Report 9092699 (Version 1)
Quarter: 2013Q1

REPORT INFORMATION
  Report Type: Spontaneous
  Country: US (occurrence: None)
  Receive Date: 20130213
  Receipt Date: 20130213
  Transmission Date: 20140127
  Serious: No
  Sender: FDA-Public Use
  Company Number: None

PATIENT
  Age: 44 Year
  Sex: Male
  Weight: 79 kg

DRUGS (1)
  1. RIFAMPIN [Suspect]
     Indication: LATENT TUBERCULOSIS
     Route: 048
     Dates: start: 20120905, end: 20120919

REACTIONS (1)
  - Stomatitis [None]
